FAERS Safety Report 24281327 (Version 1)
Quarter: 2024Q3

REPORT INFORMATION
  Report Type: Spontaneous
  Country: BR (occurrence: BR)
  Receive Date: 20240904
  Receipt Date: 20240904
  Transmission Date: 20241017
  Serious: Yes (Hospitalization)
  Sender: BOEHRINGER INGELHEIM
  Company Number: BR-BoehringerIngelheim-2024-BI-047531

PATIENT
  Sex: Male

DRUGS (2)
  1. JARDIANCE [Suspect]
     Active Substance: EMPAGLIFLOZIN
     Indication: Product used for unknown indication
     Dosage: 10 MILLIGRAMS OR JARDIANCE 25 MILLIGRAMS, CUTTING THE TABLET, ONCE A DAY IN THE MORNING.
     Dates: start: 202211
  2. JARDIANCE [Suspect]
     Active Substance: EMPAGLIFLOZIN
     Dosage: 10 MILLIGRAMS OR JARDIANCE 25 MILLIGRAMS, CUTTING THE TABLET, ONCE A DAY IN THE MORNING.
     Dates: start: 202211

REACTIONS (3)
  - Lung disorder [Unknown]
  - Cardiac failure [Unknown]
  - Wrong technique in product usage process [Unknown]

NARRATIVE: CASE EVENT DATE: 20221101
